FAERS Safety Report 16577775 (Version 4)
Quarter: 2019Q4

REPORT INFORMATION
  Report Type: Spontaneous
  Country: US (occurrence: US)
  Receive Date: 20190716
  Receipt Date: 20191231
  Transmission Date: 20200122
  Serious: No
  Sender: FDA-Public Use
  Company Number: US-GLAXOSMITHKLINE-US2019123016

PATIENT
  Age: 64 Year
  Sex: Female

DRUGS (2)
  1. IMITREX [Suspect]
     Active Substance: SUMATRIPTAN SUCCINATE
     Indication: MIGRAINE
     Dosage: 20 MG, PRN, TRIED IT ON AND OFF FOR TWO YEARS
     Route: 045
     Dates: start: 20150701, end: 20170701
  2. IMIGRAN TABLET [Suspect]
     Active Substance: SUMATRIPTAN SUCCINATE
     Indication: MIGRAINE
     Dosage: 100 MG, QD, (FOREIGN GSK PRODUCT, MADE IN TURKEY, 90 TABLET)
     Route: 048
     Dates: start: 20190601

REACTIONS (7)
  - Headache [Unknown]
  - Pain [Unknown]
  - Diarrhoea [Unknown]
  - Dizziness [Unknown]
  - Vomiting [Unknown]
  - Drug ineffective [Unknown]
  - Product complaint [Unknown]

NARRATIVE: CASE EVENT DATE: 20150701
